FAERS Safety Report 21200835 (Version 4)
Quarter: 2022Q4

REPORT INFORMATION
  Report Type: Spontaneous
  Country: US (occurrence: US)
  Receive Date: 20220811
  Receipt Date: 20221124
  Transmission Date: 20230112
  Serious: Yes (Other)
  Sender: FDA-Public Use
  Company Number: US-SA-SAC20220809001471

PATIENT
  Age: 38 Year
  Sex: Male

DRUGS (1)
  1. DUPIXENT [Suspect]
     Active Substance: DUPILUMAB
     Indication: Nasal polyps
     Dosage: 300 MG, QOW
     Route: 058
     Dates: start: 202112

REACTIONS (9)
  - Mast cell activation syndrome [Unknown]
  - Ocular hyperaemia [Unknown]
  - Injection site swelling [Unknown]
  - Dry eye [Unknown]
  - Eosinophil count increased [Unknown]
  - Mastocytosis [Unknown]
  - Tryptase increased [Unknown]
  - Blood immunoglobulin G increased [Unknown]
  - Drug ineffective [Unknown]
